FAERS Safety Report 5049622-8 (Version None)
Quarter: 2006Q2

REPORT INFORMATION
  Report Type: 
  Country: None (occurrence: None)
  Receive Date: 20060601
  Receipt Date: 20060228
  Transmission Date: 20061013
  Serious: No
  Sender: FDA-Public Use
  Company Number: US200603000219

PATIENT
  Age: 70 Year
  Sex: Female

DRUGS (7)
  1. CYMBALTA [Suspect]
     Indication: PAIN
     Dosage: 60 MG, DAILY (1/D)
     Dates: start: 20040901
  2. OXYCONTIN [Concomitant]
  3. VICODIN [Concomitant]
  4. POTASSIUM (POTASSIUM) [Concomitant]
  5. PREMARIN [Concomitant]
  6. SOMA [Concomitant]
  7. KLONOPIN [Concomitant]

REACTIONS (2)
  - SOMNOLENCE [None]
  - SUDDEN ONSET OF SLEEP [None]
